FAERS Safety Report 5409707-0 (Version None)
Quarter: 2007Q3

REPORT INFORMATION
  Report Type: 
  Country: None (occurrence: None)
  Receive Date: 20070809
  Receipt Date: 20070807
  Transmission Date: 20080115
  Serious: Yes (Congenital Anomaly)
  Sender: FDA-Public Use
  Company Number: A0634381A

PATIENT
  Sex: Male
  Weight: 2.3 kg

DRUGS (3)
  1. COMBIVIR [Suspect]
     Indication: HIV INFECTION
     Dosage: 2TAB PER DAY
     Dates: start: 20060810
  2. VIRACEPT [Concomitant]
     Dosage: 2500MG PER DAY
     Dates: start: 20060810
  3. TRIMETHOPRIM + SULFAMETHOXAZOLE [Concomitant]

REACTIONS (4)
  - DRUG EXPOSURE DURING PREGNANCY [None]
  - HYDRONEPHROSIS [None]
  - KIDNEY MALFORMATION [None]
  - RENAL DISORDER [None]
